FAERS Safety Report 5334003-X (Version None)
Quarter: 2007Q2

REPORT INFORMATION
  Report Type: 
  Country: None (occurrence: None)
  Receive Date: 20070524
  Receipt Date: 20070512
  Transmission Date: 20071010
  Serious: Yes (Death, Other)
  Sender: FDA-Public Use
  Company Number: US-PFIZER INC-2007038820

PATIENT

DRUGS (1)
  1. CADUET [Suspect]

REACTIONS (1)
  - ARRHYTHMIA [None]
